FAERS Safety Report 14696450 (Version 1)
Quarter: 2018Q1

REPORT INFORMATION
  Report Type: Spontaneous
  Country: US (occurrence: US)
  Receive Date: 20180330
  Receipt Date: 20180330
  Transmission Date: 20180509
  Serious: No
  Sender: FDA-Public Use
  Company Number: US-SA-2017SA051514

PATIENT
  Age: 55 Year
  Sex: Male

DRUGS (6)
  1. ALLEGRA ALLERGY [Suspect]
     Active Substance: FEXOFENADINE HYDROCHLORIDE
     Indication: SEASONAL ALLERGY
     Dosage: START DATE: 2 DAYS AGO
     Route: 065
     Dates: start: 201703, end: 201703
  2. ALLEGRA ALLERGY [Suspect]
     Active Substance: FEXOFENADINE HYDROCHLORIDE
     Indication: SEASONAL ALLERGY
     Route: 065
     Dates: start: 201703
  3. ALLEGRA ALLERGY [Suspect]
     Active Substance: FEXOFENADINE HYDROCHLORIDE
     Indication: MULTIPLE ALLERGIES
     Dosage: TOOK TWO TABLETS WITHIN 24H PERIOD
     Route: 065
     Dates: start: 201703, end: 201703
  4. ALLEGRA ALLERGY [Suspect]
     Active Substance: FEXOFENADINE HYDROCHLORIDE
     Indication: SEASONAL ALLERGY
     Dosage: TOOK TWO TABLETS WITHIN 24H PERIOD
     Route: 065
     Dates: start: 201703, end: 201703
  5. ALLEGRA ALLERGY [Suspect]
     Active Substance: FEXOFENADINE HYDROCHLORIDE
     Indication: MULTIPLE ALLERGIES
     Route: 065
     Dates: start: 201703
  6. ALLEGRA ALLERGY [Suspect]
     Active Substance: FEXOFENADINE HYDROCHLORIDE
     Indication: MULTIPLE ALLERGIES
     Dosage: START DATE: 2 DAYS AGO
     Route: 065
     Dates: start: 201703, end: 201703

REACTIONS (3)
  - Oral disorder [Unknown]
  - Extra dose administered [Unknown]
  - Tongue dry [Unknown]

NARRATIVE: CASE EVENT DATE: 201703
